FAERS Safety Report 6836716-7 (Version None)
Quarter: 2010Q3

REPORT INFORMATION
  Report Type: 
  Country: None (occurrence: None)
  Receive Date: 20100713
  Receipt Date: 20100629
  Transmission Date: 20110219
  Serious: Yes (Hospitalization)
  Sender: FDA-Public Use
  Company Number: US-MYLANLABS-2010S1011609

PATIENT
  Age: 44 Year
  Sex: Female

DRUGS (3)
  1. SALBUTAMOL [Suspect]
     Indication: ASTHMA
     Route: 055
  2. SALMETEROL [Suspect]
     Indication: STRIDOR
     Dosage: 1 PROLONGED COURSE
     Route: 065
  3. EPINEPHRINE [Concomitant]
     Indication: STRIDOR
     Route: 058

REACTIONS (1)
  - LACTIC ACIDOSIS [None]
